FAERS Safety Report 25484689 (Version 1)
Quarter: 2025Q2

REPORT INFORMATION
  Report Type: Spontaneous
  Country: US (occurrence: None)
  Receive Date: 20250627
  Receipt Date: 20250627
  Transmission Date: 20250717
  Serious: Yes (Life-Threatening, Hospitalization)
  Sender: FDA-CTU
  Company Number: None

PATIENT
  Age: 68 Year
  Sex: Male
  Weight: 113 kg

DRUGS (6)
  1. PROTAMINE SULFATE [Suspect]
     Active Substance: PROTAMINE SULFATE
     Indication: Procoagulant therapy
     Route: 042
     Dates: start: 20250626, end: 20250626
  2. nitroglycerin 100mcg/ml [Concomitant]
     Dates: start: 20250626, end: 20250626
  3. midazolam 1mg/ml [Concomitant]
     Dates: start: 20250626, end: 20250626
  4. LIDOCAINE [Concomitant]
     Active Substance: LIDOCAINE
     Dates: start: 20250626, end: 20250626
  5. fentanyl 100mcg/ml [Concomitant]
     Dates: start: 20250626, end: 20250626
  6. VISIpaque 320mg iodine/ml [Concomitant]
     Dates: start: 20250626, end: 20250626

REACTIONS (3)
  - Hypotension [None]
  - Bradycardia [None]
  - Apnoea [None]

NARRATIVE: CASE EVENT DATE: 20250626
